FAERS Safety Report 12251561 (Version 1)
Quarter: 2016Q2

REPORT INFORMATION
  Report Type: Spontaneous
  Country: US (occurrence: US)
  Receive Date: 20160410
  Receipt Date: 20160410
  Transmission Date: 20160815
  Serious: No
  Sender: FDA-Public Use
  Company Number: US-JNJFOC-20160312444

PATIENT
  Age: 23 Year
  Sex: Male
  Weight: 77.11 kg

DRUGS (2)
  1. INVEGA SUSTENNA [Suspect]
     Active Substance: PALIPERIDONE PALMITATE
     Indication: SCHIZOPHRENIA
     Route: 030
     Dates: start: 201509, end: 201512
  2. INVEGA SUSTENNA [Suspect]
     Active Substance: PALIPERIDONE PALMITATE
     Indication: SCHIZOPHRENIA
     Route: 030
     Dates: start: 201510

REACTIONS (4)
  - Fatigue [Unknown]
  - Adverse drug reaction [Unknown]
  - Drug dose omission [Unknown]
  - Sedation [Unknown]

NARRATIVE: CASE EVENT DATE: 201509
